FAERS Safety Report 4492577-5 (Version None)
Quarter: 2004Q4

REPORT INFORMATION
  Report Type: 
  Country: None (occurrence: None)
  Receive Date: 20041029
  Receipt Date: 20041014
  Transmission Date: 20050328
  Serious: No
  Sender: FDA-Public Use
  Company Number: 2004AP05346

PATIENT
  Age: 69 Year
  Sex: Male

DRUGS (3)
  1. MARCAINE [Suspect]
     Indication: SPINAL ANAESTHESIA
     Dosage: 2.8 ML DAILY ED
     Route: 008
  2. MARCAINE [Suspect]
     Indication: SPINAL ANAESTHESIA
     Dosage: 2.5 ML DAILY ED
     Route: 008
  3. ANTIHYPERTENSIVE [Concomitant]

REACTIONS (3)
  - ANAESTHETIC COMPLICATION [None]
  - CONVULSION [None]
  - DYSKINESIA [None]
